FAERS Safety Report 17297339 (Version 4)
Quarter: 2020Q1

REPORT INFORMATION
  Report Type: Report from Study
  Country: ZA (occurrence: ZA)
  Receive Date: 20200121
  Receipt Date: 20200306
  Transmission Date: 20200409
  Serious: Yes (Hospitalization)
  Sender: FDA-Public Use
  Company Number: ZA-ALLERGAN-1920780US

PATIENT
  Sex: Female
  Weight: 83.3 kg

DRUGS (10)
  1. BLINDED PLACEBO [Suspect]
     Active Substance: INVESTIGATIONAL PRODUCT
     Dosage: UNK
     Dates: start: 20181120, end: 20181120
  2. BLINDED PLACEBO [Suspect]
     Active Substance: INVESTIGATIONAL PRODUCT
     Dosage: UNK
     Dates: start: 20180731, end: 20180731
  3. BLINDED BIMATOPROST 0.01 MG INS (11047X) [Suspect]
     Active Substance: BIMATOPROST
     Dosage: UNK
     Dates: start: 20181120, end: 20181120
  4. BLINDED BIMATOPROST 0.015 MG INS (11048X) [Suspect]
     Active Substance: BIMATOPROST
     Dosage: UNK
     Dates: start: 20181120, end: 20181120
  5. BLINDED PLACEBO [Suspect]
     Active Substance: INVESTIGATIONAL PRODUCT
     Indication: OPEN ANGLE GLAUCOMA
     Dosage: UNK
     Dates: start: 20190311, end: 20191216
  6. BLINDED BIMATOPROST 0.01 MG INS (11047X) [Suspect]
     Active Substance: BIMATOPROST
     Dosage: UNK
     Dates: start: 20180731, end: 20180731
  7. FLUOROMETHOLON [Concomitant]
     Indication: PTERYGIUM
     Dosage: 1 GTT, TID
     Route: 061
     Dates: start: 20190509
  8. BLINDED BIMATOPROST 0.01 MG INS (11047X) [Suspect]
     Active Substance: BIMATOPROST
     Indication: OPEN ANGLE GLAUCOMA
     Dosage: UNK
     Dates: start: 20190311, end: 20191216
  9. BLINDED BIMATOPROST 0.015 MG INS (11048X) [Suspect]
     Active Substance: BIMATOPROST
     Indication: OPEN ANGLE GLAUCOMA
     Dosage: UNK
     Dates: start: 20190311, end: 20191216
  10. BLINDED BIMATOPROST 0.015 MG INS (11048X) [Suspect]
     Active Substance: BIMATOPROST
     Dosage: UNK
     Dates: start: 20180731, end: 20180731

REACTIONS (2)
  - Pterygium [Recovered/Resolved]
  - Corneal oedema [Recovered/Resolved with Sequelae]

NARRATIVE: CASE EVENT DATE: 20190515
